FAERS Safety Report 4797379-8 (Version None)
Quarter: 2005Q4

REPORT INFORMATION
  Report Type: 
  Country: None (occurrence: None)
  Receive Date: 20051013
  Receipt Date: 20051004
  Transmission Date: 20060501
  Serious: Yes (Death, Hospitalization)
  Sender: FDA-Public Use
  Company Number: US-JNJFOC-20050902574

PATIENT
  Age: 38 Year
  Sex: Female

DRUGS (3)
  1. ASPIRIN [Suspect]
     Indication: SUICIDE ATTEMPT
     Route: 048
  2. ACETAMINOPHEN W/ PROPOXYPHENE HCL [Suspect]
     Route: 048
  3. ACETAMINOPHEN W/ PROPOXYPHENE HCL [Suspect]
     Indication: SUICIDE ATTEMPT
     Route: 048

REACTIONS (11)
  - ACIDOSIS [None]
  - BLOOD BICARBONATE DECREASED [None]
  - BLOOD CALCIUM INCREASED [None]
  - BLOOD GLUCOSE INCREASED [None]
  - COMPLETED SUICIDE [None]
  - ELECTROCARDIOGRAM QRS COMPLEX PROLONGED [None]
  - HYPOXIA [None]
  - INTENTIONAL DRUG MISUSE [None]
  - OXYGEN SATURATION DECREASED [None]
  - SOMNOLENCE [None]
  - SPEECH DISORDER [None]
